FAERS Safety Report 12850051 (Version 1)
Quarter: 2016Q4

REPORT INFORMATION
  Report Type: Spontaneous
  Country: IN (occurrence: IN)
  Receive Date: 20161014
  Receipt Date: 20161014
  Transmission Date: 20170207
  Serious: Yes (Hospitalization)
  Sender: FDA-Public Use
  Company Number: IN-MYLANLABS-2016M1044106

PATIENT

DRUGS (2)
  1. ISOTRETINOIN [Suspect]
     Active Substance: ISOTRETINOIN
     Indication: ALOPECIA SCARRING
     Dosage: 20 MG, QD
     Route: 048
  2. ISOTRETINOIN [Suspect]
     Active Substance: ISOTRETINOIN
     Dosage: 40 MG, QD
     Route: 048

REACTIONS (5)
  - Thrombocytopenia [Recovering/Resolving]
  - Cheilitis [Recovering/Resolving]
  - Tachycardia [Recovering/Resolving]
  - Myopathy [Recovering/Resolving]
  - Leukopenia [Recovering/Resolving]
